FAERS Safety Report 8210858-6 (Version None)
Quarter: 2012Q1

REPORT INFORMATION
  Report Type: 
  Country: None (occurrence: None)
  Receive Date: 20120315
  Receipt Date: 20120229
  Transmission Date: 20120608
  Serious: Yes (Death, Hospitalization)
  Sender: FDA-Public Use
  Company Number: FR-ALVOGEN-2012AL000013

PATIENT
  Age: 80 Year
  Sex: Female

DRUGS (10)
  1. FURADANTIN [Suspect]
     Indication: PRODUCT USED FOR UNKNOWN INDICATION
     Route: 048
     Dates: start: 20110419, end: 20110422
  2. ESCITALOPRAM OXALATE [Concomitant]
     Indication: PRODUCT USED FOR UNKNOWN INDICATION
  3. ACETAMINOPHEN [Concomitant]
     Indication: PRODUCT USED FOR UNKNOWN INDICATION
  4. XANAX [Concomitant]
     Indication: PRODUCT USED FOR UNKNOWN INDICATION
  5. LEVOTHYROXINE SODIUM [Concomitant]
     Indication: PRODUCT USED FOR UNKNOWN INDICATION
  6. BISOPROLOL FUMARATE [Concomitant]
     Indication: PRODUCT USED FOR UNKNOWN INDICATION
  7. FLUINDIONE [Concomitant]
     Indication: PRODUCT USED FOR UNKNOWN INDICATION
  8. NOROXIN [Suspect]
     Indication: URINARY TRACT INFECTION
     Route: 048
     Dates: start: 20110404, end: 20110412
  9. RISPERDAL [Concomitant]
     Indication: PRODUCT USED FOR UNKNOWN INDICATION
  10. BACTRIM [Suspect]
     Indication: PRODUCT USED FOR UNKNOWN INDICATION
     Dates: start: 20110418, end: 20110419

REACTIONS (7)
  - RENAL FAILURE ACUTE [None]
  - COMA [None]
  - HEPATITIS ACUTE [None]
  - ASTHENIA [None]
  - FATIGUE [None]
  - DISCOMFORT [None]
  - ACUTE GENERALISED EXANTHEMATOUS PUSTULOSIS [None]
